FAERS Safety Report 4606559-3 (Version None)
Quarter: 2005Q2

REPORT INFORMATION
  Report Type: 
  Country: None (occurrence: None)
  Receive Date: 20050223
  Receipt Date: 20040805
  Transmission Date: 20051028
  Serious: Yes (Other)
  Sender: FDA-Public Use
  Company Number: WAES 0408USA00505

PATIENT
  Age: 62 Year
  Sex: Male

DRUGS (6)
  1. ZOCOR [Suspect]
     Indication: CORONARY ARTERY DISEASE
     Dosage: 40 MG/DAILY/PO
     Route: 048
     Dates: end: 20040805
  2. ZOCOR [Suspect]
     Indication: LIPIDS
     Dosage: 40 MG/DAILY/PO
     Route: 048
     Dates: end: 20040805
  3. LOTREL [Concomitant]
  4. ULTRACET [Concomitant]
  5. ZETIA [Concomitant]
  6. ATENOLOL [Concomitant]

REACTIONS (3)
  - ARTHRALGIA [None]
  - BLOOD CREATINE PHOSPHOKINASE INCREASED [None]
  - MYALGIA [None]
